FAERS Safety Report 9868346 (Version 4)
Quarter: 2020Q3

REPORT INFORMATION
  Report Type: Report from Study
  Country: TR (occurrence: TR)
  Receive Date: 20140204
  Receipt Date: 20140703
  Transmission Date: 20201104
  Serious: Yes (Hospitalization)
  Sender: FDA-Public Use
  Company Number: PHHY2014TR010565

PATIENT
  Age: 66 Year
  Sex: Female

DRUGS (7)
  1. FOLINIC ACID [Suspect]
     Active Substance: LEUCOVORIN
     Indication: GASTROOESOPHAGEAL CANCER
     Dosage: 640 MG, EVERY TWO WEEKS
     Route: 042
     Dates: start: 20131231
  2. OXALIPLATIN. [Suspect]
     Active Substance: OXALIPLATIN
     Indication: GASTROOESOPHAGEAL CANCER
     Dosage: 136 MG, EVERY TWO WEEKS
     Route: 042
     Dates: start: 20131231
  3. 5?FLUOROURACIL [Suspect]
     Active Substance: FLUOROURACIL
     Dosage: 3840 MG, EVERY TWO WEEKS
     Route: 041
     Dates: start: 20131231
  4. GLIFIX [Concomitant]
     Indication: DIABETES MELLITUS
     Dosage: 15 MG, UNK
     Route: 048
     Dates: start: 2012
  5. GRANISETRON [Concomitant]
     Active Substance: GRANISETRON
     Indication: NAUSEA
     Dosage: 2 MG, UNK
     Route: 048
     Dates: start: 20140114
  6. 5?FLUOROURACIL [Suspect]
     Active Substance: FLUOROURACIL
     Indication: GASTROOESOPHAGEAL CANCER
     Dosage: 640 MG, EVERY TWO WEEKS (BOLUS)
     Route: 040
     Dates: start: 20131231
  7. ONARTUZUMAB. [Suspect]
     Active Substance: ONARTUZUMAB
     Dosage: 1 DF, QW2
     Dates: start: 20131231

REACTIONS (1)
  - Neutropenia [Recovered/Resolved]

NARRATIVE: CASE EVENT DATE: 20140114
